FAERS Safety Report 13682838 (Version 2)
Quarter: 2017Q3

REPORT INFORMATION
  Report Type: Report from Study
  Country: GR (occurrence: GR)
  Receive Date: 20170623
  Receipt Date: 20170705
  Transmission Date: 20171127
  Serious: Yes (Death)
  Sender: FDA-Public Use
  Company Number: GR-PFIZER INC-2017265696

PATIENT
  Age: 14 Month
  Sex: Male

DRUGS (8)
  1. TIGECYCLINE. [Suspect]
     Active Substance: TIGECYCLINE
     Indication: ACINETOBACTER BACTERAEMIA
     Dosage: 2 MG/KG, 2X/DAY [MAINTENANCE DOSE, DOSE (BID): 22 MG]
     Route: 042
  2. AMPHOTERICIN B, LIPOSOME [Concomitant]
     Active Substance: AMPHOTERICIN B
     Indication: SEPSIS
     Dosage: UNK
  3. TIGECYCLINE. [Suspect]
     Active Substance: TIGECYCLINE
     Indication: SEPSIS
     Dosage: 4 MG/KG, SINGLE (LOADING DOSE)
     Route: 042
  4. COLISTIN [Concomitant]
     Active Substance: COLISTIN
     Indication: ACINETOBACTER BACTERAEMIA
  5. GENTAMICIN. [Concomitant]
     Active Substance: GENTAMICIN
     Indication: SEPSIS
     Dosage: UNK
  6. AMPHOTERICIN B, LIPOSOME [Concomitant]
     Active Substance: AMPHOTERICIN B
     Indication: ACINETOBACTER BACTERAEMIA
  7. GENTAMICIN. [Concomitant]
     Active Substance: GENTAMICIN
     Indication: ACINETOBACTER BACTERAEMIA
  8. COLISTIN [Concomitant]
     Active Substance: COLISTIN
     Indication: SEPSIS
     Dosage: UNK

REACTIONS (1)
  - Treatment failure [Fatal]
